FAERS Safety Report 23987264 (Version 1)
Quarter: 2024Q2

REPORT INFORMATION
  Report Type: Spontaneous
  Country: US (occurrence: US)
  Receive Date: 20240618
  Receipt Date: 20240618
  Transmission Date: 20240716
  Serious: Yes (Life-Threatening, Other)
  Sender: FDA-Public Use
  Company Number: US-PFIZER INC-PV202400078030

PATIENT
  Age: 60 Year
  Sex: Male

DRUGS (1)
  1. DAPTOMYCIN [Suspect]
     Active Substance: DAPTOMYCIN
     Indication: Osteomyelitis bacterial
     Dosage: 850 MG, ALTERNATE DAY (EVERY 48 HOURS FOR 20 DAYS, A TOTAL OF 11 DOSES)

REACTIONS (2)
  - Eosinophilic pneumonia [Recovered/Resolved]
  - Off label use [Unknown]
